FAERS Safety Report 5246217-8 (Version None)
Quarter: 2007Q1

REPORT INFORMATION
  Report Type: 
  Country: None (occurrence: None)
  Receive Date: 20070221
  Receipt Date: 20070207
  Transmission Date: 20070707
  Serious: Yes (Other)
  Sender: FDA-Public Use
  Company Number: 234446

PATIENT
  Age: 89 Year
  Sex: Female

DRUGS (2)
  1. RANIBIZUMAB  (RANIBIZUMAB ) PWDR + SOLVENT, INJECTION SOLN [Suspect]
     Indication: DRUG USE FOR UNKNOWN INDICATION
     Dosage: INTRAVITREAL
     Route: 050
     Dates: start: 20060706
  2. ... [Suspect]

REACTIONS (1)
  - CEREBROVASCULAR ACCIDENT [None]
